FAERS Safety Report 7111734-2 (Version None)
Quarter: 2010Q4

REPORT INFORMATION
  Report Type: 
  Country: None (occurrence: None)
  Receive Date: 20101118
  Receipt Date: 20101111
  Transmission Date: 20110411
  Serious: Yes (Other)
  Sender: FDA-Public Use
  Company Number: US-MERCK-0911USA01849

PATIENT
  Age: 86 Year
  Sex: Male

DRUGS (4)
  1. FOSAMAX [Suspect]
     Indication: OSTEOPOROSIS
     Route: 048
     Dates: start: 20010725, end: 20070622
  2. FOSAMAX [Suspect]
     Route: 048
     Dates: start: 20000530, end: 20010412
  3. FOSAMAX [Suspect]
     Indication: OSTEOARTHRITIS
     Route: 048
     Dates: start: 20010725, end: 20070622
  4. FOSAMAX [Suspect]
     Route: 048
     Dates: start: 20000530, end: 20010412

REACTIONS (12)
  - ADVERSE EVENT [None]
  - CORONARY ARTERY DISEASE [None]
  - EDENTULOUS [None]
  - GINGIVAL BLEEDING [None]
  - HYPERTENSION [None]
  - MITRAL VALVE PROLAPSE [None]
  - OSTEITIS DEFORMANS [None]
  - OSTEONECROSIS OF JAW [None]
  - PERIODONTITIS [None]
  - SINUSITIS [None]
  - TOOTH DISORDER [None]
  - TOOTH FRACTURE [None]
